FAERS Safety Report 19751126 (Version 1)
Quarter: 2021Q3

REPORT INFORMATION
  Report Type: Other
  Country: CN (occurrence: CN)
  Receive Date: 20210826
  Receipt Date: 20210826
  Transmission Date: 20211014
  Serious: Yes (Other)
  Sender: FDA-Public Use
  Company Number: CN-ROCHE-2893750

PATIENT

DRUGS (17)
  1. 5?FU [Suspect]
     Active Substance: FLUOROURACIL
     Indication: GASTRIC CANCER
     Dosage: DAY 1
     Route: 042
  2. PACLITAXEL. [Suspect]
     Active Substance: PACLITAXEL
     Indication: GASTRIC CANCER
     Dosage: DAYS 1, 8 ?Q3WK, UP TO 4 CYCLES
     Route: 042
  3. CISPLATIN. [Suspect]
     Active Substance: CISPLATIN
     Indication: GASTRIC CANCER
     Dosage: DAYS 1?14
     Route: 042
  4. ETOPOSIDE. [Suspect]
     Active Substance: ETOPOSIDE
     Dosage: DAY 1
     Route: 042
  5. CARBOPLATIN. [Suspect]
     Active Substance: CARBOPLATIN
     Indication: GASTRIC CANCER
     Dosage: AUC 4?DAY 1
     Route: 065
  6. IRINOTECAN [Suspect]
     Active Substance: IRINOTECAN
     Indication: GASTRIC CANCER
     Dosage: DAY 1 ?Q2WK, UP TO 6 CYCLES
     Route: 042
  7. EPIRUBICIN [Suspect]
     Active Substance: EPIRUBICIN
     Indication: GASTRIC CANCER
     Dosage: DAY 1
     Route: 042
  8. PACLITAXEL. [Suspect]
     Active Substance: PACLITAXEL
     Dosage: DAY 1?Q3WK, UP TO 4 CYCLES
     Route: 042
  9. PACLITAXEL. [Suspect]
     Active Substance: PACLITAXEL
     Dosage: DAY 1 ?Q2WK, UP TO 6 CYCLES
     Route: 042
  10. ETOPOSIDE. [Suspect]
     Active Substance: ETOPOSIDE
     Indication: GASTRIC CANCER
     Dosage: DAY 1?Q3WK, UP TO 4 CYCLES
     Route: 042
  11. LEUCOVORIN. [Suspect]
     Active Substance: LEUCOVORIN
     Indication: GASTRIC CANCER
     Dosage: DAY 1
     Route: 042
  12. 5?FU [Suspect]
     Active Substance: FLUOROURACIL
     Dosage: 5?FU (CONTINUOUS): 2,400?3,000 MG/M2 IV DAYS 1?2
     Route: 042
  13. DOCETAXEL. [Suspect]
     Active Substance: DOCETAXEL
     Indication: GASTRIC CANCER
     Route: 065
  14. CAPECITABINE. [Suspect]
     Active Substance: CAPECITABINE
     Indication: GASTRIC CANCER
     Dosage: DAYS 1?14?Q3WK, UP TO 6 CYCLES
     Route: 048
  15. OXALIPLATIN. [Suspect]
     Active Substance: OXALIPLATIN
     Indication: GASTRIC CANCER
     Dosage: DAY 1. ?Q3WK, UP TO 6 CYCLES
     Route: 042
  16. OXALIPLATIN. [Suspect]
     Active Substance: OXALIPLATIN
     Dosage: DAY 1
     Route: 042
  17. OXALIPLATIN. [Suspect]
     Active Substance: OXALIPLATIN
     Dosage: DAY 1 Q3WK, UP TO 4 CYCLES
     Route: 042

REACTIONS (14)
  - Toxic shock syndrome [Unknown]
  - Abdominal abscess [Unknown]
  - Pyrexia [Unknown]
  - Systemic infection [Unknown]
  - Respiratory failure [Unknown]
  - Transfusion [Unknown]
  - Anastomotic leak [Unknown]
  - Haemorrhage [Unknown]
  - Pneumonia [Unknown]
  - Abdominal infection [Unknown]
  - Infection [Unknown]
  - Lymphorrhoea [Unknown]
  - Peritonitis [Unknown]
  - White blood cell count increased [Unknown]
